FAERS Safety Report 10301354 (Version 1)
Quarter: 2014Q3

REPORT INFORMATION
  Report Type: Spontaneous
  Country: US (occurrence: None)
  Receive Date: 20140710
  Receipt Date: 20140710
  Transmission Date: 20150326
  Serious: Yes (Hospitalization)
  Sender: FDA-Public Use
  Company Number: None

PATIENT
  Age: 30 Year
  Sex: Male

DRUGS (3)
  1. ABILIFY [Suspect]
     Active Substance: ARIPIPRAZOLE
     Dosage: 1, QHS/BEDTIME, ORAL
     Route: 048
  2. REMERON [Concomitant]
     Active Substance: MIRTAZAPINE
  3. TRILAFON [Suspect]
     Active Substance: PERPHENAZINE
     Dosage: 1, QHS/BEDTIME, ORAL
     Route: 048

REACTIONS (4)
  - Confusional state [None]
  - Blood pressure decreased [None]
  - Heart rate increased [None]
  - Unresponsive to stimuli [None]

NARRATIVE: CASE EVENT DATE: 20140413
